FAERS Safety Report 8400415-0 (Version None)
Quarter: 2012Q2

REPORT INFORMATION
  Report Type: 
  Country: None (occurrence: None)
  Receive Date: 20120531
  Receipt Date: 20120523
  Transmission Date: 20120825
  Serious: Yes (Other)
  Sender: FDA-Public Use
  Company Number: US-US-EMD SERONO, INC.-7135962

PATIENT
  Sex: Male

DRUGS (2)
  1. SAIZEN [Suspect]
     Route: 058
  2. SAIZEN [Suspect]
     Indication: GROWTH HORMONE DEFICIENCY
     Route: 058
     Dates: start: 20090301, end: 20111101

REACTIONS (3)
  - PAIN IN EXTREMITY [None]
  - INAPPROPRIATE SCHEDULE OF DRUG ADMINISTRATION [None]
  - APPENDICECTOMY [None]
